FAERS Safety Report 7442908-9 (Version None)
Quarter: 2011Q2

REPORT INFORMATION
  Report Type: 
  Country: None (occurrence: None)
  Receive Date: 20110428
  Receipt Date: 20110419
  Transmission Date: 20111010
  Serious: Yes (Hospitalization)
  Sender: FDA-Public Use
  Company Number: US-ASTRAZENECA-2011SE23177

PATIENT
  Age: 21254 Day
  Sex: Female
  Weight: 64.9 kg

DRUGS (1)
  1. CRESTOR [Suspect]
     Indication: BLOOD CHOLESTEROL ABNORMAL
     Route: 048
     Dates: start: 20090101

REACTIONS (5)
  - GAIT DISTURBANCE [None]
  - PAIN [None]
  - MYALGIA [None]
  - DEPRESSED MOOD [None]
  - BUNION OPERATION [None]
